FAERS Safety Report 7917389 (Version 3)
Quarter: 2013Q3

REPORT INFORMATION
  Report Type: Spontaneous
  Country: DK (occurrence: CH)
  Receive Date: 20110427
  Receipt Date: 20130719
  Transmission Date: 20140515
  Serious: Yes (Hospitalization, Other)
  Sender: FDA-Public Use
  Company Number: DK-SANOFI-AVENTIS-2011SA025283

PATIENT
  Age: 48 Year
  Sex: Female

DRUGS (1)
  1. MINIRIN [Suspect]
     Indication: HAEMORRHAGE PROPHYLAXIS
     Route: 065
     Dates: start: 20040212, end: 20040212

REACTIONS (4)
  - Cerebrovascular accident [Recovered/Resolved with Sequelae]
  - Hemiparesis [Not Recovered/Not Resolved]
  - VIIth nerve paralysis [Not Recovered/Not Resolved]
  - Aphasia [Not Recovered/Not Resolved]
